FAERS Safety Report 4918459-X (Version None)
Quarter: 2006Q1

REPORT INFORMATION
  Report Type: 
  Country: None (occurrence: None)
  Receive Date: 20060217
  Receipt Date: 20060217
  Transmission Date: 20060701
  Serious: No
  Sender: FDA-Public Use
  Company Number: None

PATIENT
  Age: 39 Year
  Sex: Female
  Weight: 60.1 kg

DRUGS (3)
  1. ISOVUE-300 [Suspect]
     Indication: COMPUTERISED TOMOGRAM
     Dosage: 100 ML IV    3 ML/SEC (OR 2ML/SEC)
     Route: 042
  2. ORAL CONTRAST [Suspect]
     Indication: COMPUTERISED TOMOGRAM
  3. IMATINIB [Concomitant]

REACTIONS (5)
  - DEHYDRATION [None]
  - DIZZINESS [None]
  - PROCEDURAL COMPLICATION [None]
  - PRURITUS [None]
  - URTICARIA [None]
